FAERS Safety Report 8709753 (Version 2)
Quarter: 2013Q3

REPORT INFORMATION
  Report Type: Spontaneous
  Country: US (occurrence: US)
  Receive Date: 20120806
  Receipt Date: 20130806
  Transmission Date: 20140515
  Serious: No
  Sender: FDA-Public Use
  Company Number: US-GLAXOSMITHKLINE-A0976975A

PATIENT
  Age: 57 Year
  Sex: Female

DRUGS (8)
  1. ADVAIR [Suspect]
     Indication: ASTHMA
     Dosage: 2PUFF TWICE PER DAY
     Route: 055
     Dates: start: 2009
  2. ADVAIR [Suspect]
     Indication: ASTHMA
     Route: 055
  3. PROVENTIL [Concomitant]
  4. VITAMIN B 12 [Concomitant]
  5. CALCIUM [Concomitant]
  6. MULTI VITAMIN [Concomitant]
  7. VITAMIN [Concomitant]
     Indication: SUPPLEMENTATION THERAPY
  8. CELEBREX [Concomitant]

REACTIONS (7)
  - Dyspnoea [Unknown]
  - Dyspnoea exertional [Unknown]
  - Pharyngeal disorder [Unknown]
  - Increased appetite [Unknown]
  - Weight increased [Unknown]
  - Chest discomfort [Recovered/Resolved]
  - Drug ineffective [Recovered/Resolved]
